FAERS Safety Report 26192217 (Version 1)
Quarter: 2025Q4

REPORT INFORMATION
  Report Type: Spontaneous
  Country: SY (occurrence: SY)
  Receive Date: 20251223
  Receipt Date: 20251223
  Transmission Date: 20260117
  Serious: Yes (Life-Threatening, Hospitalization)
  Sender: ACCORD
  Company Number: SY-Accord-520563

PATIENT
  Age: 77 Year
  Sex: Male

DRUGS (2)
  1. OXALIPLATIN [Suspect]
     Active Substance: OXALIPLATIN
     Indication: Colorectal cancer stage II
     Dosage: INTRAVENOUSLY ON DAY 1 OF EACH 3-WEEK CYCLE
     Route: 042
     Dates: start: 2017
  2. XELODA [Suspect]
     Active Substance: CAPECITABINE
     Indication: Colorectal cancer stage II
     Dosage: CAPECITABINE (XELODA) TAKEN ORALLY AT 1500 MG TWICE
     Route: 048
     Dates: start: 2017

REACTIONS (2)
  - Acute myeloid leukaemia [Unknown]
  - Leukaemia [Unknown]

NARRATIVE: CASE EVENT DATE: 20230201
